FAERS Safety Report 19680355 (Version 1)
Quarter: 2021Q3

REPORT INFORMATION
  Report Type: Spontaneous
  Country: NL (occurrence: FR)
  Receive Date: 20210810
  Receipt Date: 20210810
  Transmission Date: 20211014
  Serious: Yes (Life-Threatening)
  Sender: FDA-Public Use
  Company Number: FR-FRESENIUS KABI-FK202108082

PATIENT
  Sex: Male

DRUGS (4)
  1. SUFENTANIL [Suspect]
     Active Substance: SUFENTANIL
     Indication: GENERAL ANAESTHESIA
     Dosage: 1 DF
     Route: 042
     Dates: start: 20210702, end: 20210702
  2. PROPOFOL (MANUFACTURER UNKNOWN) [Suspect]
     Active Substance: PROPOFOL
     Indication: GENERAL ANAESTHESIA
     Dosage: 200 MG
     Route: 042
     Dates: start: 20210702, end: 20210702
  3. KETAMINE [Suspect]
     Active Substance: KETAMINE
     Indication: GENERAL ANAESTHESIA
     Dosage: 10 MG
     Route: 042
     Dates: start: 20210702, end: 20210702
  4. SUXAMETHONIUM IODIDE [Suspect]
     Active Substance: SUCCINYLCHOLINE IODIDE
     Indication: GENERAL ANAESTHESIA
     Dosage: 90 MG
     Route: 042
     Dates: start: 20210702, end: 20210702

REACTIONS (4)
  - Erythema [Unknown]
  - Cardiogenic shock [Unknown]
  - Laryngeal oedema [Unknown]
  - Face oedema [Unknown]

NARRATIVE: CASE EVENT DATE: 20210702
